FAERS Safety Report 24455672 (Version 2)
Quarter: 2024Q4

REPORT INFORMATION
  Report Type: Report from Study
  Country: CA (occurrence: CA)
  Receive Date: 20241017
  Receipt Date: 20241018
  Transmission Date: 20250114
  Serious: No
  Sender: ROCHE
  Company Number: CA-ROCHE-3500309

PATIENT
  Age: 68 Year
  Sex: Female

DRUGS (18)
  1. RITUXAN [Suspect]
     Active Substance: RITUXIMAB
     Indication: Rheumatoid arthritis
     Route: 041
     Dates: start: 20191121
  2. RITUXAN [Suspect]
     Active Substance: RITUXIMAB
     Route: 042
  3. ASPIRIN [Concomitant]
     Active Substance: ASPIRIN
  4. ACLASTA [Concomitant]
     Active Substance: ZOLEDRONIC ACID
  5. BENADRYL [Concomitant]
     Active Substance: DIPHENHYDRAMINE HYDROCHLORIDE
     Route: 048
     Dates: start: 20211013
  6. BIOTIN [Concomitant]
     Active Substance: BIOTIN
  7. CHLORPHENIRAMINE [Concomitant]
     Active Substance: CHLORPHENIRAMINE
  8. COLLAGEN [Concomitant]
     Active Substance: COLLAGEN
  9. IRON [Concomitant]
     Active Substance: IRON
  10. MESTINON [Concomitant]
     Active Substance: PYRIDOSTIGMINE BROMIDE
  11. METHOTREXATE [Concomitant]
     Active Substance: METHOTREXATE
     Indication: Joint swelling
  12. OMEGA 3 [Concomitant]
     Active Substance: CAPSAICIN
  13. PREDNISONE [Concomitant]
     Active Substance: PREDNISONE
  14. SOLU-MEDROL [Concomitant]
     Active Substance: METHYLPREDNISOLONE SODIUM SUCCINATE
     Route: 042
     Dates: start: 20211013
  15. TYLENOL [Concomitant]
     Active Substance: ACETAMINOPHEN
     Route: 048
     Dates: start: 20211013
  16. VITAMIN B12 [Concomitant]
     Active Substance: CYANOCOBALAMIN
  17. VITAMIN C [Concomitant]
     Active Substance: ASCORBIC ACID
  18. ERGOCALCIFEROL [Concomitant]
     Active Substance: ERGOCALCIFEROL

REACTIONS (1)
  - Diarrhoea [Unknown]

NARRATIVE: CASE EVENT DATE: 20240120
